FAERS Safety Report 5177098-9 (Version None)
Quarter: 2006Q4

REPORT INFORMATION
  Report Type: 
  Country: None (occurrence: None)
  Receive Date: 20061207
  Receipt Date: 20061127
  Transmission Date: 20070319
  Serious: Yes (Hospitalization, Other)
  Sender: FDA-Public Use
  Company Number: 2006136599

PATIENT
  Age: 62 Year
  Sex: Female
  Weight: 54 kg

DRUGS (9)
  1. ZOLOFT [Suspect]
     Dosage: 50 MG (1 IN1 D), ORAL
     Route: 048
     Dates: start: 20061031, end: 20061102
  2. RISPERDAL [Concomitant]
  3. HIRNAMIN (LEVOMEPROAZINE) [Concomitant]
  4. ZOLPIDEM TARTRATE [Concomitant]
  5. EURODIN (ESTRAZOLAM) [Concomitant]
  6. LEXOTAN (BROMAZEPAM) [Concomitant]
  7. TOLEDOMIN (MILNACIPPRAN HYDROCHLORIDE) [Concomitant]
  8. HIBERNA (PROMETHAZINE HDYROCHLORIDE) [Concomitant]
  9. VEGETAMIN (CHLORPROMAZINE HYDROCHLORIDE, PHENOBARBITAL, PROMETHAZINE H [Concomitant]

REACTIONS (2)
  - HYPERTENSION [None]
  - SINUS TACHYCARDIA [None]
